FAERS Safety Report 24602794 (Version 2)
Quarter: 2025Q1

REPORT INFORMATION
  Report Type: Spontaneous
  Country: US (occurrence: US)
  Receive Date: 20241111
  Receipt Date: 20250214
  Transmission Date: 20250408
  Serious: Yes (Death, Life-Threatening, Hospitalization, Other)
  Sender: AUROBINDO
  Company Number: US-MLMSERVICE-20241021-PI232422-00043-1

PATIENT
  Age: 54 Year
  Sex: Male

DRUGS (4)
  1. VANCOMYCIN [Interacting]
     Active Substance: VANCOMYCIN
     Indication: Sepsis
     Route: 065
     Dates: start: 202308
  2. ALLOPURINOL [Interacting]
     Active Substance: ALLOPURINOL
     Indication: Gout
     Route: 065
     Dates: start: 2023
  3. SODIUM BICARBONATE [Concomitant]
     Active Substance: SODIUM BICARBONATE
     Indication: Product used for unknown indication
     Route: 065
     Dates: start: 202308
  4. REMDESIVIR [Concomitant]
     Active Substance: REMDESIVIR
     Indication: COVID-19
     Route: 065
     Dates: start: 202308, end: 202308

REACTIONS (7)
  - Cardio-respiratory arrest [Fatal]
  - Haemophagocytic lymphohistiocytosis [Fatal]
  - Drug reaction with eosinophilia and systemic symptoms [Unknown]
  - Rhabdomyolysis [Unknown]
  - Toxic epidermal necrolysis [Unknown]
  - Disseminated intravascular coagulation [Unknown]
  - Drug interaction [Unknown]

NARRATIVE: CASE EVENT DATE: 20230801
